FAERS Safety Report 6546676-4 (Version None)
Quarter: 2010Q1

REPORT INFORMATION
  Report Type: 
  Country: None (occurrence: None)
  Receive Date: 20100122
  Receipt Date: 20100113
  Transmission Date: 20100710
  Serious: Yes (Life-Threatening, Hospitalization)
  Sender: FDA-Public Use
  Company Number: CH-PFIZER INC-2010004590

PATIENT
  Age: 78 Year
  Sex: Male
  Weight: 62 kg

DRUGS (12)
  1. CAMPTOSAR [Suspect]
     Dosage: 300 MG, CYCLIC
     Route: 041
     Dates: start: 20091021, end: 20091021
  2. 5-FU [Suspect]
     Dosage: UNK
     Route: 041
     Dates: start: 20090101, end: 20090401
  3. 5-FU [Suspect]
     Dosage: UNK
     Route: 041
     Dates: start: 20090923, end: 20091007
  4. 5-FU [Suspect]
     Dosage: UNK
     Route: 041
     Dates: start: 20091021, end: 20091021
  5. AVASTIN [Suspect]
     Dosage: UNK
     Route: 041
     Dates: start: 20090101, end: 20090401
  6. AVASTIN [Suspect]
     Dosage: UNK
     Route: 041
     Dates: start: 20090923, end: 20091007
  7. AVASTIN [Suspect]
     Dosage: 300 MG, CYCLIC
     Route: 041
     Dates: start: 20091021, end: 20091021
  8. FOLINIC ACID [Concomitant]
     Dosage: UNK MG, CYCLIC
     Route: 041
     Dates: start: 20090101, end: 20090401
  9. FOLINIC ACID [Concomitant]
     Dosage: UNK
     Route: 041
     Dates: start: 20090923, end: 20091007
  10. FOLINIC ACID [Concomitant]
     Dosage: 340 MG, CYCLIC
     Route: 041
     Dates: start: 20091021, end: 20091021
  11. METFIN [Concomitant]
     Dosage: 1000 MG, 2X/DAY
     Route: 048
  12. DIAMICRON MR [Concomitant]
     Dosage: 30 MG, 2X/DAY
     Route: 048

REACTIONS (2)
  - AGRANULOCYTOSIS [None]
  - MUCOSAL INFLAMMATION [None]
